FAERS Safety Report 9795638 (Version 3)
Quarter: 2014Q1

REPORT INFORMATION
  Report Type: Spontaneous
  Country: US (occurrence: US)
  Receive Date: 20140103
  Receipt Date: 20140207
  Transmission Date: 20141002
  Serious: No
  Sender: FDA-Public Use
  Company Number: US-PFIZER INC-2014000362

PATIENT
  Age: 75 Year
  Sex: Male

DRUGS (1)
  1. CHANTIX [Suspect]
     Indication: SMOKING CESSATION THERAPY
     Dosage: UNK
     Dates: end: 2009

REACTIONS (6)
  - Aggression [Unknown]
  - Weight decreased [Unknown]
  - Abnormal behaviour [Unknown]
  - Personality change [Unknown]
  - Screaming [Unknown]
  - Anger [Unknown]
